FAERS Safety Report 22592185 (Version 5)
Quarter: 2025Q1

REPORT INFORMATION
  Report Type: Spontaneous
  Country: CA (occurrence: CA)
  Receive Date: 20230613
  Receipt Date: 20250322
  Transmission Date: 20250408
  Serious: Yes (Other)
  Sender: CELLTRION
  Company Number: CA-CELLTRION INC.-2023CA011804

PATIENT

DRUGS (10)
  1. INFLECTRA [Suspect]
     Active Substance: INFLIXIMAB-DYYB
     Indication: Colitis ulcerative
     Route: 042
     Dates: start: 20230519
  2. INFLECTRA [Suspect]
     Active Substance: INFLIXIMAB-DYYB
     Route: 042
     Dates: start: 20230602
  3. INFLECTRA [Suspect]
     Active Substance: INFLIXIMAB-DYYB
     Route: 042
     Dates: start: 20230630
  4. ASPIRIN [Concomitant]
     Active Substance: ASPIRIN
  5. BASAGLAR [Concomitant]
     Active Substance: INSULIN GLARGINE
  6. BUDESONIDE [Concomitant]
     Active Substance: BUDESONIDE
  7. EZETIMIBE [Concomitant]
     Active Substance: EZETIMIBE
  8. HUMALOG [Concomitant]
     Active Substance: INSULIN LISPRO
  9. MESALAMINE [Concomitant]
     Active Substance: MESALAMINE
  10. RAMIPRIL [Concomitant]
     Active Substance: RAMIPRIL

REACTIONS (6)
  - Weight fluctuation [Unknown]
  - Condition aggravated [Recovering/Resolving]
  - Off label use [Unknown]
  - Off label use [Unknown]
  - Off label use [Unknown]
  - Intentional product use issue [Unknown]

NARRATIVE: CASE EVENT DATE: 20230519
